FAERS Safety Report 15980570 (Version 1)
Quarter: 2019Q1

REPORT INFORMATION
  Report Type: Report from Study
  Country: FR (occurrence: FR)
  Receive Date: 20190219
  Receipt Date: 20190219
  Transmission Date: 20190418
  Serious: Yes (Death)
  Sender: FDA-Public Use
  Company Number: FR-TAIHO ONCOLOGY  INC-JPTT170101

PATIENT
  Age: 65 Year
  Sex: Male
  Weight: 47 kg

DRUGS (7)
  1. SODIUM BICARBONATE. [Concomitant]
     Active Substance: SODIUM BICARBONATE
     Indication: MOUTH ULCERATION
     Dosage: 1.4 %, PRN
     Route: 002
     Dates: start: 20160601
  2. KARDEGIC [Concomitant]
     Active Substance: ASPIRIN DL-LYSINE
     Indication: PERIPHERAL ARTERY OCCLUSION
     Dosage: 75 MG, QD
     Route: 048
     Dates: start: 201401
  3. LONSURF [Suspect]
     Active Substance: TIPIRACIL HYDROCHLORIDE\TRIFLURIDINE
     Indication: RECTAL ADENOCARCINOMA
     Dosage: 55 MG BID (35 MG/M2 ON DAYS 1-5 AND 8-12 OF EACH 28-DAY CYCLE)
     Route: 048
     Dates: start: 20161222, end: 20170102
  4. IMODIUM [Concomitant]
     Active Substance: LOPERAMIDE HYDROCHLORIDE
     Indication: DIARRHOEA
     Dosage: 2 MG, PRN
     Route: 048
     Dates: start: 2012
  5. PRIMPERAN [Concomitant]
     Active Substance: METOCLOPRAMIDE HYDROCHLORIDE
     Indication: NAUSEA
     Dosage: 10 MG, PRN
     Route: 048
     Dates: start: 2014
  6. TRAMADOL HYDROCHLORIDE. [Concomitant]
     Active Substance: TRAMADOL HYDROCHLORIDE
     Indication: PAIN
     Dosage: 150 MG, PRN
     Route: 048
     Dates: start: 20160808
  7. ALPRAZOLAM. [Concomitant]
     Active Substance: ALPRAZOLAM
     Indication: ANXIETY
     Dosage: 0.125 MG, PRN
     Route: 048
     Dates: start: 2012

REACTIONS (5)
  - Vomiting [Fatal]
  - Death [Fatal]
  - Pain [None]
  - Mouth ulceration [None]
  - Diarrhoea [Fatal]

NARRATIVE: CASE EVENT DATE: 20170108
